FAERS Safety Report 9985868 (Version 1)
Quarter: 2014Q1

REPORT INFORMATION
  Report Type: Report from Study
  Country: US (occurrence: US)
  Receive Date: 20140307
  Receipt Date: 20140307
  Transmission Date: 20141002
  Serious: No
  Sender: FDA-Public Use
  Company Number: US-ABBVIE-13P-163-1084767-00

PATIENT
  Age: 54 Year
  Sex: Male

DRUGS (20)
  1. HUMIRA [Suspect]
     Indication: RHEUMATOID ARTHRITIS
     Dates: start: 201201
  2. PREDNISONE [Concomitant]
     Indication: RHEUMATOID ARTHRITIS
  3. PREDNISONE [Concomitant]
     Indication: JUVENILE IDIOPATHIC ARTHRITIS
  4. PRAVASTATIN [Concomitant]
     Indication: BLOOD CHOLESTEROL ABNORMAL
  5. OXYBUTYNIN [Concomitant]
     Indication: INCONTINENCE
  6. LISINOPRIL [Concomitant]
     Indication: RENAL DISORDER
  7. METOPROLOL SUCCINATE [Concomitant]
     Indication: BLOOD PRESSURE
  8. GABAPENTIN [Concomitant]
     Indication: NEUROPATHY PERIPHERAL
  9. GABAPENTIN [Concomitant]
     Indication: ARTHRALGIA
  10. CYMBALTA [Concomitant]
     Indication: PAIN
  11. HYDROCODONE W/APAP [Concomitant]
     Indication: PAIN
     Dosage: 10-325 MG 1 EVERY 4-6 HOURS AS NEEDED
  12. FUROSEMIDE [Concomitant]
     Indication: FLUID RETENTION
     Dosage: 1 A DAY AS NEEDED
  13. GLYBURIDE [Concomitant]
     Indication: DIABETES MELLITUS
  14. GLYBURIDE [Concomitant]
     Indication: BLOOD GLUCOSE ABNORMAL
  15. JANUVIA [Concomitant]
     Indication: BLOOD GLUCOSE ABNORMAL
  16. LANTUS [Concomitant]
     Indication: DIABETES MELLITUS
     Dosage: 100 U AND 25 U A DAY
  17. POTASSIUM [Concomitant]
     Indication: MINERAL SUPPLEMENTATION
     Dosage: ONE A DAY AS NEEDED
  18. ACETAMINOPHEN [Concomitant]
     Indication: PAIN
  19. SALIN NASAL SPRAY [Concomitant]
     Indication: NASAL CONGESTION
  20. SALIN NASAL SPRAY [Concomitant]
     Indication: HYPERSENSITIVITY

REACTIONS (3)
  - Injury associated with device [Recovering/Resolving]
  - Injection site pain [Recovering/Resolving]
  - Injection site haemorrhage [Recovering/Resolving]
